FAERS Safety Report 8943558 (Version 3)
Quarter: 2013Q3

REPORT INFORMATION
  Report Type: Report from Study
  Country: CA (occurrence: CA)
  Receive Date: 20121204
  Receipt Date: 20130904
  Transmission Date: 20140515
  Serious: Yes (Death, Other)
  Sender: FDA-Public Use
  Company Number: CA-INCYTE CORPORATION-2012IN002289

PATIENT
  Age: 80 Year
  Sex: Female

DRUGS (7)
  1. JAKAVI [Suspect]
     Indication: MYELOFIBROSIS
     Dosage: 20 MG, BID
     Route: 048
     Dates: start: 20120816
  2. JAKAVI [Suspect]
     Dosage: 15 MG, BID
     Route: 048
  3. JAKAVI [Suspect]
     Dosage: 20 MG, BID
     Route: 048
  4. ALLOPURINOL [Concomitant]
  5. FOLIC ACID [Concomitant]
  6. FUROSEMID [Concomitant]
  7. VIT D [Concomitant]

REACTIONS (9)
  - Death [Fatal]
  - Blood lactate dehydrogenase increased [Unknown]
  - Dizziness [Not Recovered/Not Resolved]
  - Pain in extremity [Unknown]
  - Restless legs syndrome [None]
  - Dyspnoea [Recovering/Resolving]
  - Asthenia [Unknown]
  - Contusion [Recovering/Resolving]
  - Platelet count decreased [Unknown]
